FAERS Safety Report 20756755 (Version 2)
Quarter: 2022Q2

REPORT INFORMATION
  Report Type: Report from Study
  Country: CA (occurrence: None)
  Receive Date: 20220427
  Receipt Date: 20220503
  Transmission Date: 20220721
  Serious: Yes (Life-Threatening)
  Sender: FDA-Public Use
  Company Number: CA-ROCHE-3071265

PATIENT
  Age: 50 Year
  Sex: Male
  Weight: 79 kg

DRUGS (6)
  1. CEVOSTAMAB [Suspect]
     Active Substance: CEVOSTAMAB
     Indication: Plasma cell myeloma
     Dosage: ON 16-FEB-2022 RECEIVED MOST RECENT DOSE OF CEVOSTAMAB PRIOR SAE AT 160 MG
     Route: 042
     Dates: start: 20210810
  2. TOCILIZUMAB [Suspect]
     Active Substance: TOCILIZUMAB
     Indication: Plasma cell myeloma
     Dosage: ON 10-JUN-2021 RECEIVED MOST RECENT DOSE OF TOCILIZUMAB PRIOR TO SAE AT 653.6 MG.
     Route: 042
     Dates: start: 20210810
  3. FERAMAX [Concomitant]
     Active Substance: IRON\POLYSACCHARIDES
     Route: 048
     Dates: start: 1990
  4. APIXABAN [Concomitant]
     Active Substance: APIXABAN
     Indication: Pulmonary embolism
     Route: 048
     Dates: start: 20210609
  5. AZITHROMYCIN ANHYDROUS [Concomitant]
     Active Substance: AZITHROMYCIN ANHYDROUS
     Indication: Oropharyngeal pain
     Route: 048
     Dates: start: 20210921
  6. AZITHROMYCIN ANHYDROUS [Concomitant]
     Active Substance: AZITHROMYCIN ANHYDROUS
     Indication: Ear pain

REACTIONS (2)
  - Epstein-Barr virus associated lymphoma [Not Recovered/Not Resolved]
  - Angiocentric lymphoma [Not Recovered/Not Resolved]

NARRATIVE: CASE EVENT DATE: 20220322
